FAERS Safety Report 15691464 (Version 9)
Quarter: 2019Q1

REPORT INFORMATION
  Report Type: Spontaneous
  Country: US (occurrence: US)
  Receive Date: 20181205
  Receipt Date: 20190325
  Transmission Date: 20190417
  Serious: Yes (Hospitalization, Other)
  Sender: FDA-Public Use
  Company Number: US-ACTELION-A-US2018-181348

PATIENT
  Age: 57 Year
  Sex: Female
  Weight: 38.55 kg

DRUGS (4)
  1. GABAPENTIN. [Suspect]
     Active Substance: GABAPENTIN
     Indication: PRODUCT USED FOR UNKNOWN INDICATION
     Route: 065
  2. VELETRI [Suspect]
     Active Substance: EPOPROSTENOL
     Dosage: 12.28 NG/KG, PER MIN
     Route: 042
  3. VELETRI [Suspect]
     Active Substance: EPOPROSTENOL
     Indication: PULMONARY HYPERTENSION
     Dosage: 30.49 NG/KG, PER MIN
     Route: 042
  4. VELETRI [Suspect]
     Active Substance: EPOPROSTENOL
     Dosage: 21.17 NG/KG, PER MIN
     Route: 042

REACTIONS (33)
  - Fluid retention [Recovering/Resolving]
  - Back pain [Not Recovered/Not Resolved]
  - Abdominal pain upper [Unknown]
  - Catheter site erythema [Unknown]
  - Abdominal distension [Unknown]
  - Pain in jaw [Unknown]
  - Haemorrhage [Unknown]
  - Catheter site discolouration [Unknown]
  - Haemoglobin decreased [Unknown]
  - Oedema peripheral [Unknown]
  - Pain [Unknown]
  - Arthritis [Unknown]
  - Transfusion [Unknown]
  - Anaemia [Unknown]
  - Flatulence [Unknown]
  - Dehydration [Unknown]
  - Abdominal pain [Unknown]
  - Skin exfoliation [Unknown]
  - Rib fracture [Unknown]
  - Catheter site discharge [Unknown]
  - Weight fluctuation [Unknown]
  - Weight decreased [Unknown]
  - Oedema [Recovering/Resolving]
  - Syncope [Unknown]
  - Catheter site haemorrhage [Unknown]
  - Peripheral swelling [Not Recovered/Not Resolved]
  - Asthenia [Unknown]
  - Chest pain [Unknown]
  - Therapy non-responder [Unknown]
  - Somnolence [Unknown]
  - Presyncope [Unknown]
  - Decreased appetite [Unknown]
  - Oxygen saturation abnormal [Unknown]

NARRATIVE: CASE EVENT DATE: 201810
